FAERS Safety Report 24465112 (Version 1)
Quarter: 2024Q4

REPORT INFORMATION
  Report Type: Report from Study
  Country: US (occurrence: US)
  Receive Date: 20241018
  Receipt Date: 20241018
  Transmission Date: 20250114
  Serious: No
  Sender: ROCHE
  Company Number: US-ROCHE-3514518

PATIENT
  Age: 69 Year
  Sex: Male
  Weight: 74.84 kg

DRUGS (13)
  1. XOLAIR [Suspect]
     Active Substance: OMALIZUMAB
     Indication: Urticaria
     Dosage: 2 INJECTIONS FOR EACH DOSE, XOLAIR LYOPHILIZED VIALS 150 MG
     Route: 058
     Dates: start: 20230401
  2. XOLAIR [Suspect]
     Active Substance: OMALIZUMAB
  3. LIDOCAINE [Suspect]
     Active Substance: LIDOCAINE
     Indication: Product used for unknown indication
     Route: 065
     Dates: start: 20240221, end: 20240221
  4. ATORVASTATIN [Concomitant]
     Active Substance: ATORVASTATIN
  5. CARVEDILOL [Concomitant]
     Active Substance: CARVEDILOL
  6. ALENDRONATE SODIUM [Concomitant]
     Active Substance: ALENDRONATE SODIUM
  7. AMLODIPINE [Concomitant]
     Active Substance: AMLODIPINE BESYLATE
  8. ISOSORBIDE MONONITRATE [Concomitant]
     Active Substance: ISOSORBIDE MONONITRATE
  9. HYDROCHLOROTHIAZIDE [Concomitant]
     Active Substance: HYDROCHLOROTHIAZIDE
  10. EZETIMIBE [Concomitant]
     Active Substance: EZETIMIBE
  11. NIACINAMIDE [Concomitant]
     Active Substance: NIACINAMIDE
  12. PREDNISONE [Concomitant]
     Active Substance: PREDNISONE
  13. DEXAMETHASONE [Concomitant]
     Active Substance: DEXAMETHASONE

REACTIONS (9)
  - Muscular weakness [Not Recovered/Not Resolved]
  - Gait disturbance [Not Recovered/Not Resolved]
  - Pain in extremity [Not Recovered/Not Resolved]
  - Skin hypertrophy [Unknown]
  - Injection site pain [Unknown]
  - Wrong technique in product usage process [Unknown]
  - Memory impairment [Unknown]
  - Back pain [Unknown]
  - Injury [Unknown]

NARRATIVE: CASE EVENT DATE: 20240221
